FAERS Safety Report 8794289 (Version 2)
Quarter: 2012Q4

REPORT INFORMATION
  Report Type: 
  Country: US (occurrence: US)
  Receive Date: 20120917
  Receipt Date: 20120926
  Transmission Date: 20130627
  Serious: Yes (Hospitalization, Other)
  Sender: FDA-Public Use
  Company Number: US-UCBSA-065650

PATIENT
  Sex: Male

DRUGS (2)
  1. CIMZIA [Suspect]
     Indication: RHEUMATOID ARTHRITIS
     Route: 058
     Dates: end: 201205
  2. METHOTREXATE [Concomitant]
     Indication: RHEUMATOID ARTHRITIS
     Dosage: 3-4 WEEKS AGO
     Route: 048
     Dates: start: 2012

REACTIONS (4)
  - Gangrene [Recovered/Resolved]
  - Neuropathic arthropathy [Unknown]
  - Pain in extremity [Recovered/Resolved]
  - Bone pain [Recovered/Resolved]
